FAERS Safety Report 8474567-0 (Version None)
Quarter: 2012Q2

REPORT INFORMATION
  Report Type: 
  Country: None (occurrence: None)
  Receive Date: 20120628
  Receipt Date: 20120620
  Transmission Date: 20120825
  Serious: Yes (Hospitalization, Disabling)
  Sender: FDA-Public Use
  Company Number: US-BAYER-2011-058317

PATIENT
  Age: 17 Year
  Sex: Female
  Weight: 47.619 kg

DRUGS (7)
  1. SERTRALINE HYDROCHLORIDE [Concomitant]
     Dosage: UNK
     Dates: start: 20100101
  2. CELEXA [Concomitant]
     Indication: DEPRESSION
  3. MOTRIN [Concomitant]
     Dosage: UNK UNK, PRN
     Dates: start: 20070101
  4. NASONEX [Concomitant]
  5. YAZ [Suspect]
     Indication: PREMENSTRUAL SYNDROME
     Dosage: UNK
     Dates: start: 20090108, end: 20090528
  6. ANTIBIOTICS [Concomitant]
     Dosage: UNK UNK, PRN
     Dates: start: 20000101
  7. LEVORA 0.15/30-21 [Concomitant]
     Dosage: UNK
     Dates: start: 20100101

REACTIONS (10)
  - VOMITING [None]
  - CHOLECYSTITIS CHRONIC [None]
  - PAIN [None]
  - ANHEDONIA [None]
  - GASTROOESOPHAGEAL REFLUX DISEASE [None]
  - ANXIETY [None]
  - NAUSEA [None]
  - GASTROINTESTINAL DISORDER [None]
  - GALLBLADDER DISORDER [None]
  - ABDOMINAL PAIN [None]
